FAERS Safety Report 24120737 (Version 1)
Quarter: 2024Q3

REPORT INFORMATION
  Report Type: Spontaneous
  Country: US (occurrence: None)
  Receive Date: 20240718
  Receipt Date: 20240718
  Transmission Date: 20241017
  Serious: No
  Sender: Public
  Company Number: None

PATIENT
  Age: 60 Year
  Sex: Female

DRUGS (2)
  1. XDEMVY [Suspect]
     Active Substance: LOTILANER
     Indication: Demodex blepharitis
     Dosage: FREQUENCY : TWICE A DAY;?
     Route: 047
     Dates: start: 20240703, end: 20240707
  2. XDEMVY [Concomitant]
     Active Substance: LOTILANER
     Dates: start: 20240703, end: 20240707

REACTIONS (3)
  - Swelling of eyelid [None]
  - Urticaria [None]
  - Therapy cessation [None]

NARRATIVE: CASE EVENT DATE: 20240707
